FAERS Safety Report 8178360-8 (Version None)
Quarter: 2012Q1

REPORT INFORMATION
  Report Type: 
  Country: None (occurrence: None)
  Receive Date: 20120301
  Receipt Date: 20120228
  Transmission Date: 20120608
  Serious: Yes (Other)
  Sender: FDA-Public Use
  Company Number: JP-PFIZER INC-2012044101

PATIENT
  Age: 56 Year
  Sex: Male

DRUGS (7)
  1. LOXONIN [Concomitant]
  2. METHOTREXATE [Concomitant]
     Dosage: UNK
  3. DIAZEPAM [Concomitant]
  4. PREDNISOLONE [Concomitant]
  5. LANSOPRAZOLE [Concomitant]
  6. LYRICA [Suspect]
     Indication: TRIGEMINAL NEURALGIA
     Dosage: 150 MG DAILY
     Dates: start: 20111120, end: 20111220
  7. LYRICA [Suspect]
     Dosage: 300 MG DAILY
     Dates: start: 20111220

REACTIONS (1)
  - CARDIOMEGALY [None]
